FAERS Safety Report 7054390-4 (Version None)
Quarter: 2010Q4

REPORT INFORMATION
  Report Type: 
  Country: None (occurrence: None)
  Receive Date: 20101015
  Receipt Date: 20100929
  Transmission Date: 20110411
  Serious: Yes (Hospitalization)
  Sender: FDA-Public Use
  Company Number: 2010004256

PATIENT
  Age: 75 Year
  Sex: Male
  Weight: 70 kg

DRUGS (14)
  1. ERLOTINIB HYDROCHLORIDE [Suspect]
     Indication: LUNG SQUAMOUS CELL CARCINOMA STAGE UNSPECIFIED
     Dosage: (150 MG, QD), ORAL
     Route: 048
     Dates: start: 20090403, end: 20090404
  2. LANSOPRAZOLE [Concomitant]
  3. UNIPHYL [Concomitant]
  4. MUCODYNE (CARBOCISTEINE) [Concomitant]
  5. GANATON (ITOPRIDE HYDROCHLORIDE) [Concomitant]
  6. BIOFERMIN R (STREPTOCOCCUS FAECALIS) [Concomitant]
  7. SPIRIVA [Concomitant]
  8. GASCON (DIMETICONE) [Concomitant]
  9. ASPARA K (ASPARTATE POTASSIUM) [Concomitant]
  10. RESPLEN (EPRAZINONE HYDROCHLORIDE) [Concomitant]
  11. SEREVENT [Concomitant]
  12. LIPITOR [Concomitant]
  13. ALLOPURINOL [Concomitant]
  14. AMLODIPINE BESYLATE [Concomitant]

REACTIONS (7)
  - CEREBRAL HAEMORRHAGE [None]
  - CEREBRAL INFARCTION [None]
  - CONVULSION [None]
  - DEPRESSED LEVEL OF CONSCIOUSNESS [None]
  - LUNG SQUAMOUS CELL CARCINOMA STAGE UNSPECIFIED [None]
  - MALIGNANT NEOPLASM PROGRESSION [None]
  - METASTASES TO CENTRAL NERVOUS SYSTEM [None]
